FAERS Safety Report 6932109-2 (Version None)
Quarter: 2010Q3

REPORT INFORMATION
  Report Type: 
  Country: None (occurrence: None)
  Receive Date: 20100819
  Receipt Date: 20100806
  Transmission Date: 20110219
  Serious: Yes (Hospitalization)
  Sender: FDA-Public Use
  Company Number: A0866371A

PATIENT
  Age: 84 Year
  Sex: Female

DRUGS (6)
  1. AVANDIA [Suspect]
     Indication: DIABETES MELLITUS
     Dosage: 4MG TWICE PER DAY
     Route: 048
     Dates: start: 20080504, end: 20080905
  2. METFORMIN HCL [Concomitant]
     Dates: end: 20080901
  3. FOSAMAX [Concomitant]
  4. FLUVOXAMINE MALEATE [Concomitant]
  5. HUMULIN R [Concomitant]
  6. ARICEPT [Concomitant]

REACTIONS (4)
  - ATRIAL FIBRILLATION [None]
  - CARDIAC FAILURE CONGESTIVE [None]
  - HYPERTENSION [None]
  - OEDEMA PERIPHERAL [None]
